FAERS Safety Report 22302679 (Version 1)
Quarter: 2023Q2

REPORT INFORMATION
  Report Type: Spontaneous
  Country: PL (occurrence: PL)
  Receive Date: 20230510
  Receipt Date: 20230510
  Transmission Date: 20230721
  Serious: Yes (Other)
  Sender: FDA-Public Use
  Company Number: PL-AUROBINDO-AUR-APL-2023-035142

PATIENT
  Age: 36 Year
  Sex: Male

DRUGS (5)
  1. FUROSEMIDE [Suspect]
     Active Substance: FUROSEMIDE
     Indication: Malignant hypertension
     Dosage: UNK
     Route: 065
  2. EPLERENONE [Concomitant]
     Active Substance: EPLERENONE
     Indication: Retinoschisis
     Dosage: 25 MILLIGRAM
     Route: 065
  3. CAPTOPRIL [Concomitant]
     Active Substance: CAPTOPRIL
     Indication: Malignant hypertension
     Dosage: UNK
     Route: 065
  4. NITRENDIPINE [Concomitant]
     Active Substance: NITRENDIPINE
     Indication: Malignant hypertension
     Dosage: UNK
     Route: 065
  5. NITROGLYCERIN [Concomitant]
     Active Substance: NITROGLYCERIN
     Indication: Malignant hypertension
     Dosage: UNK
     Route: 065

REACTIONS (1)
  - Therapeutic product effect incomplete [Unknown]
